FAERS Safety Report 20894446 (Version 2)
Quarter: 2022Q2

REPORT INFORMATION
  Report Type: Spontaneous
  Country: US (occurrence: US)
  Receive Date: 20220531
  Receipt Date: 20220618
  Transmission Date: 20220721
  Serious: No
  Sender: FDA-Public Use
  Company Number: US-BRISTOL-MYERS SQUIBB COMPANY-2022-034852

PATIENT
  Age: 79 Year
  Sex: Female
  Weight: 72.57 kg

DRUGS (1)
  1. REVLIMID [Suspect]
     Active Substance: LENALIDOMIDE
     Indication: Myelodysplastic syndrome
     Route: 048
     Dates: start: 20220401

REACTIONS (4)
  - Laryngitis [Recovering/Resolving]
  - Fatigue [Unknown]
  - Bone pain [Unknown]
  - Arthritis [Unknown]

NARRATIVE: CASE EVENT DATE: 20220501
